FAERS Safety Report 15554182 (Version 1)
Quarter: 2018Q4

REPORT INFORMATION
  Report Type: Spontaneous
  Country: US (occurrence: US)
  Receive Date: 20181025
  Receipt Date: 20181025
  Transmission Date: 20190205
  Serious: Yes (Hospitalization)
  Sender: FDA-Public Use
  Company Number: None

PATIENT
  Age: 78 Year
  Sex: Male
  Weight: 91.1 kg

DRUGS (1)
  1. IMBRUVICA [Suspect]
     Active Substance: IBRUTINIB
     Indication: CHRONIC LYMPHOCYTIC LEUKAEMIA
     Route: 049
     Dates: start: 20180816, end: 20180916

REACTIONS (7)
  - Leukocytosis [None]
  - Leukostasis syndrome [None]
  - Pleural effusion [None]
  - Herpes zoster [None]
  - Haemothorax [None]
  - Deep vein thrombosis [None]
  - Candida infection [None]

NARRATIVE: CASE EVENT DATE: 20180916
